FAERS Safety Report 8740462 (Version 2)
Quarter: 2013Q4

REPORT INFORMATION
  Report Type: Spontaneous
  Country: US (occurrence: US)
  Receive Date: 20120823
  Receipt Date: 20131101
  Transmission Date: 20140711
  Serious: No
  Sender: FDA-Public Use
  Company Number: US-009507513-1208USA006065

PATIENT
  Age: 18 Year
  Sex: Female
  Weight: 46.26 kg

DRUGS (1)
  1. NEXPLANON [Suspect]
     Indication: CONTRACEPTION
     Dosage: UNK
     Route: 059
     Dates: start: 20120710

REACTIONS (4)
  - Muscle spasms [Unknown]
  - Nausea [Unknown]
  - Weight increased [Unknown]
  - Abdominal distension [Unknown]
